FAERS Safety Report 5483751-X (Version None)
Quarter: 2007Q4

REPORT INFORMATION
  Report Type: 
  Country: None (occurrence: None)
  Receive Date: 20071012
  Receipt Date: 20071005
  Transmission Date: 20080405
  Serious: Yes (Hospitalization)
  Sender: FDA-Public Use
  Company Number: US-BRACCO-BDI-010312

PATIENT
  Age: 46 Year
  Sex: Male

DRUGS (2)
  1. ISOVUE-128 [Suspect]
     Indication: CHEST PAIN
     Dosage: ADMINISTERED A TOTAL OF 310 MILLILITERS
     Route: 013
     Dates: start: 20071001, end: 20071001
  2. ISOVUE-128 [Suspect]
     Dosage: ADMINISTERED A TOTAL OF 310 MILLILITERS
     Route: 013
     Dates: start: 20071001, end: 20071001

REACTIONS (1)
  - CEREBROVASCULAR ACCIDENT [None]
